FAERS Safety Report 4330087-6 (Version None)
Quarter: 2004Q1

REPORT INFORMATION
  Report Type: 
  Country: None (occurrence: None)
  Receive Date: 20040329
  Receipt Date: 20040319
  Transmission Date: 20041129
  Serious: Yes (Other)
  Sender: FDA-Public Use
  Company Number: 2004204743DE

PATIENT
  Sex: Female

DRUGS (3)
  1. DOXORUBICIN HCL [Suspect]
     Indication: BREAST CANCER METASTATIC
     Dosage: 50 MG/M2, DL, CYCLIC
  2. NEOCEL           (DOCETAXEL)SOLUTION, STERILE [Suspect]
     Indication: BREAST CANCER METASTATIC
  3. CORTICOSTEROIDS [Concomitant]

REACTIONS (1)
  - PULMONARY TOXICITY [None]
